FAERS Safety Report 9355094 (Version 3)
Quarter: 2013Q3

REPORT INFORMATION
  Report Type: Spontaneous
  Country: US (occurrence: US)
  Receive Date: 20130619
  Receipt Date: 20130923
  Transmission Date: 20140515
  Serious: Yes (Death, Life-Threatening)
  Sender: FDA-Public Use
  Company Number: US-MERCK-1306USA007785

PATIENT
  Sex: Male

DRUGS (3)
  1. SAPHRIS [Suspect]
     Dosage: UNK
     Route: 060
  2. ALCOHOL [Suspect]
  3. COCAINE [Suspect]

REACTIONS (2)
  - Death [Fatal]
  - Overdose [Fatal]
